FAERS Safety Report 9381206 (Version 1)
Quarter: 2013Q3

REPORT INFORMATION
  Report Type: Spontaneous
  Country: US (occurrence: US)
  Receive Date: 20130703
  Receipt Date: 20130703
  Transmission Date: 20140515
  Serious: No
  Sender: FDA-Public Use
  Company Number: US-TEVA-416603USA

PATIENT
  Age: 41 Year
  Sex: Female
  Weight: 71.73 kg

DRUGS (4)
  1. PARAGARD 380A [Suspect]
     Indication: CONTRACEPTION
     Route: 015
     Dates: start: 20130628, end: 20130628
  2. COUMADIN [Concomitant]
     Indication: MITRAL VALVE DISEASE
  3. METHIMAZOLE [Concomitant]
  4. VITAMINS [Concomitant]
     Indication: VITAMIN SUPPLEMENTATION

REACTIONS (1)
  - Device expulsion [Recovered/Resolved]
